FAERS Safety Report 6120411-6 (Version None)
Quarter: 2009Q1

REPORT INFORMATION
  Report Type: 
  Country: None (occurrence: None)
  Receive Date: 20090316
  Receipt Date: 20090316
  Transmission Date: 20090719
  Serious: Yes (Hospitalization)
  Sender: FDA-Public Use
  Company Number: None

PATIENT
  Age: 83 Year
  Sex: Female
  Weight: 54.4316 kg

DRUGS (1)
  1. ANAGRELIDE HCL [Suspect]
     Indication: PLATELET COUNT INCREASED
     Dosage: 40 MG 2 X DAILY PO
     Route: 048

REACTIONS (1)
  - PANCREATITIS [None]
